FAERS Safety Report 5703917-0 (Version None)
Quarter: 2008Q2

REPORT INFORMATION
  Report Type: 
  Country: None (occurrence: None)
  Receive Date: 20080409
  Receipt Date: 20080325
  Transmission Date: 20081010
  Serious: Yes (Hospitalization, Other)
  Sender: FDA-Public Use
  Company Number: 002#2#2008-00160

PATIENT
  Age: 69 Year
  Sex: Female

DRUGS (5)
  1. NEUPRO [Suspect]
     Indication: PARKINSON'S DISEASE
     Dosage: 6MG/24H,1 IN 1 D, TRANSDERMAL
     Route: 062
     Dates: start: 20071010
  2. SINEMET [Concomitant]
  3. EFFEXOR [Concomitant]
  4. INDERAL [Concomitant]
  5. BENICAR [Concomitant]

REACTIONS (5)
  - ASTHENIA [None]
  - DYSSTASIA [None]
  - PHARMACEUTICAL PRODUCT COMPLAINT [None]
  - SYNCOPE [None]
  - VISION BLURRED [None]
